FAERS Safety Report 24849951 (Version 1)
Quarter: 2025Q1

REPORT INFORMATION
  Report Type: Spontaneous
  Country: US (occurrence: None)
  Receive Date: 20250116
  Receipt Date: 20250116
  Transmission Date: 20250409
  Serious: Yes (Hospitalization)
  Sender: FDA-CTU
  Company Number: None

PATIENT
  Sex: Male

DRUGS (2)
  1. JULUCA [Suspect]
     Active Substance: DOLUTEGRAVIR SODIUM\RILPIVIRINE HYDROCHLORIDE
     Indication: HIV infection
     Dosage: OTHER QUANTITY : 50/25MG;?FREQUENCY : DAILY;?
     Route: 048
     Dates: start: 201809
  2. ALPROLIX INJ [Concomitant]

REACTIONS (2)
  - Weight decreased [None]
  - Gallbladder disorder [None]
